FAERS Safety Report 18473178 (Version 2)
Quarter: 2020Q4

REPORT INFORMATION
  Report Type: Report from Study
  Country: CA (occurrence: CA)
  Receive Date: 20201106
  Receipt Date: 20201204
  Transmission Date: 20210114
  Serious: Yes (Other)
  Sender: FDA-Public Use
  Company Number: CA-JNJFOC-20201107025

PATIENT
  Age: 40 Year
  Sex: Female
  Weight: 58 kg

DRUGS (3)
  1. STELARA [Suspect]
     Active Substance: USTEKINUMAB
     Indication: CROHN^S DISEASE
     Route: 042
     Dates: start: 20200902
  2. STELARA [Suspect]
     Active Substance: USTEKINUMAB
     Route: 058
     Dates: start: 2020
  3. STELARA [Suspect]
     Active Substance: USTEKINUMAB
     Dosage: LATEST STELARA DOSE RECEIVED ON 28-OCT-2020,
     Route: 058
     Dates: start: 2020

REACTIONS (9)
  - Haematochezia [Not Recovered/Not Resolved]
  - Fatigue [Recovered/Resolved]
  - Dyspepsia [Recovered/Resolved]
  - Faeces soft [Not Recovered/Not Resolved]
  - Therapeutic product effect incomplete [Unknown]
  - Product use issue [Unknown]
  - Headache [Recovered/Resolved]
  - Abdominal pain [Not Recovered/Not Resolved]
  - Off label use [Unknown]

NARRATIVE: CASE EVENT DATE: 2020
